FAERS Safety Report 5171513-2 (Version None)
Quarter: 2006Q4

REPORT INFORMATION
  Report Type: 
  Country: None (occurrence: None)
  Receive Date: 20061213
  Receipt Date: 20060717
  Transmission Date: 20070319
  Serious: Yes (Hospitalization)
  Sender: FDA-Public Use
  Company Number: US-AMGEN-US186677

PATIENT
  Sex: Female

DRUGS (5)
  1. ENBREL [Suspect]
     Indication: RHEUMATOID ARTHRITIS
     Route: 058
     Dates: start: 19990101
  2. TREXALL [Concomitant]
     Route: 065
     Dates: start: 19990101
  3. FOLIC ACID [Concomitant]
     Route: 065
  4. ARTHROTEC [Concomitant]
     Route: 065
  5. SUCRALFATE [Concomitant]
     Route: 065

REACTIONS (1)
  - PANCREATITIS ACUTE [None]
